FAERS Safety Report 25524301 (Version 1)
Quarter: 2025Q3

REPORT INFORMATION
  Report Type: Spontaneous
  Country: CN (occurrence: CN)
  Receive Date: 20250707
  Receipt Date: 20250707
  Transmission Date: 20251021
  Serious: No
  Sender: ELI LILLY AND COMPANY
  Company Number: CN-ELI_LILLY_AND_COMPANY-CN202507002756

PATIENT
  Age: 58 Year
  Sex: Male
  Weight: 78 kg

DRUGS (4)
  1. CIALIS [Suspect]
     Active Substance: TADALAFIL
     Indication: Erectile dysfunction
     Route: 048
     Dates: start: 201703, end: 202203
  2. CIALIS [Suspect]
     Active Substance: TADALAFIL
     Dosage: 5 MG, DAILY
     Route: 048
     Dates: start: 202203, end: 202406
  3. CIALIS [Suspect]
     Active Substance: TADALAFIL
     Dosage: 20 MG, DAILY; 20MG OR SPLIT THE PILL (BREAK THE 20MG INTO TWO PIECES AND ONE AT A TIME)
     Route: 048
     Dates: start: 202406
  4. VIAGRA [Concomitant]
     Active Substance: SILDENAFIL CITRATE
     Indication: Erectile dysfunction
     Dosage: 100 MG, DAILY
     Route: 048
     Dates: start: 202406

REACTIONS (3)
  - Presbyopia [Not Recovered/Not Resolved]
  - Wrong technique in product usage process [Unknown]
  - Vision blurred [Not Recovered/Not Resolved]

NARRATIVE: CASE EVENT DATE: 20210601
